FAERS Safety Report 5889195-0 (Version None)
Quarter: 2008Q3

REPORT INFORMATION
  Report Type: 
  Country: None (occurrence: None)
  Receive Date: 20080919
  Receipt Date: 20080918
  Transmission Date: 20090109
  Serious: Yes (Death)
  Sender: FDA-Public Use
  Company Number: US-ASTRAZENECA-2008UW13220

PATIENT
  Sex: Female

DRUGS (3)
  1. SYMBICORT [Suspect]
     Indication: ASTHMA
     Dosage: 80/4.5 2 INHALATIONS TWICE DAILY
     Route: 055
     Dates: start: 20071201
  2. SINGULAIR [Suspect]
     Indication: ASTHMA
  3. STEROID THERAPY [Concomitant]

REACTIONS (4)
  - ASTHMA [None]
  - BRONCHOSPASM [None]
  - CARDIO-RESPIRATORY ARREST [None]
  - DRUG EXPOSURE DURING PREGNANCY [None]
